FAERS Safety Report 12613510 (Version 4)
Quarter: 2016Q3

REPORT INFORMATION
  Report Type: Report from Study
  Country: JP (occurrence: JP)
  Receive Date: 20160802
  Receipt Date: 20160920
  Transmission Date: 20161109
  Serious: Yes (Hospitalization)
  Sender: FDA-Public Use
  Company Number: JP-B.I. PHARMACEUTICALS,INC./RIDGEFIELD-2016-BI-48701NB

PATIENT
  Age: 69 Year
  Sex: Male
  Weight: 60.8 kg

DRUGS (5)
  1. SUREPOST [Concomitant]
     Active Substance: REPAGLINIDE
     Indication: TYPE 2 DIABETES MELLITUS
     Dosage: 0.75 MG
     Route: 048
     Dates: end: 20160521
  2. SUNRYTHM [Concomitant]
     Active Substance: PILSICAINIDE HYDROCHLORIDE
     Indication: PRODUCT USED FOR UNKNOWN INDICATION
     Dosage: 100 MG
     Route: 048
     Dates: end: 20160521
  3. MAINTATE [Concomitant]
     Active Substance: BISOPROLOL FUMARATE
     Indication: PRODUCT USED FOR UNKNOWN INDICATION
     Dosage: 1.25 MG
     Route: 048
     Dates: end: 20160521
  4. JARDIANCE [Suspect]
     Active Substance: EMPAGLIFLOZIN
     Indication: TYPE 2 DIABETES MELLITUS
     Dosage: 10 MG
     Route: 048
     Dates: start: 20160309, end: 20160521
  5. TRESIBA [Concomitant]
     Active Substance: INSULIN DEGLUDEC
     Indication: TYPE 2 DIABETES MELLITUS
     Dosage: 7 U
     Route: 065
     Dates: end: 20160521

REACTIONS (1)
  - Pancreatic neoplasm [Unknown]

NARRATIVE: CASE EVENT DATE: 201604
